FAERS Safety Report 23496871 (Version 1)
Quarter: 2024Q1

REPORT INFORMATION
  Report Type: Spontaneous
  Country: US (occurrence: None)
  Receive Date: 20240207
  Receipt Date: 20240207
  Transmission Date: 20240410
  Serious: No
  Sender: FDA-Public Use
  Company Number: US-ROCHE-3427360

PATIENT
  Age: 25 Year
  Sex: Female
  Weight: 114.41 kg

DRUGS (1)
  1. XOLAIR [Suspect]
     Active Substance: OMALIZUMAB
     Indication: Nasal polyps
     Dosage: DOSE RECEIVED: 22/JUN/2023, 28/JUL/2023
     Route: 058
     Dates: start: 20230519, end: 20230728

REACTIONS (2)
  - Migraine [Recovered/Resolved]
  - Epistaxis [Recovered/Resolved]

NARRATIVE: CASE EVENT DATE: 20230728
